FAERS Safety Report 5218308-9 (Version None)
Quarter: 2007Q1

REPORT INFORMATION
  Report Type: 
  Country: None (occurrence: None)
  Receive Date: 20070122
  Receipt Date: 20070122
  Transmission Date: 20070707
  Serious: Yes (Other)
  Sender: FDA-Public Use
  Company Number: None

PATIENT
  Age: 59 Year
  Sex: Female

DRUGS (5)
  1. FOSAMAX [Suspect]
     Indication: OSTEOPOROSIS PROPHYLAXIS
     Dosage: 70MG QWEEK PO
     Route: 048
     Dates: start: 20050829, end: 20061024
  2. CALCIUM WITH ELEMENTAL D [Concomitant]
  3. HYDROCHLOROTHIAZIDE [Concomitant]
  4. ESTROGENS SOL/INJ [Concomitant]
  5. RABEPRAZOLE SODIUM [Concomitant]

REACTIONS (2)
  - GASTRITIS [None]
  - OESOPHAGITIS [None]
